FAERS Safety Report 23755471 (Version 1)
Quarter: 2024Q2

REPORT INFORMATION
  Report Type: Spontaneous
  Country: SE (occurrence: SE)
  Receive Date: 20240418
  Receipt Date: 20240418
  Transmission Date: 20240716
  Serious: Yes (Disabling)
  Sender: FDA-Public Use
  Company Number: None

PATIENT
  Sex: Female
  Weight: 29 kg

DRUGS (1)
  1. ELOCON [Suspect]
     Active Substance: MOMETASONE FUROATE
     Indication: Eczema
     Dosage: APPLY ONCE A DAY FOR 1 WEEK, THEN EVERY OTHER DAY FOR A WEEK OR UNTIL THE ECZEMA IS HEALED
     Route: 003
     Dates: start: 20180110, end: 2024

REACTIONS (6)
  - Pruritus [Not Recovered/Not Resolved]
  - Failure to thrive [Not Recovered/Not Resolved]
  - Skin discolouration [Not Recovered/Not Resolved]
  - Eczema [Not Recovered/Not Resolved]
  - Topical steroid withdrawal reaction [Not Recovered/Not Resolved]
  - Skin exfoliation [Not Recovered/Not Resolved]

NARRATIVE: CASE EVENT DATE: 20210101
